FAERS Safety Report 8597769-1 (Version None)
Quarter: 2012Q3

REPORT INFORMATION
  Report Type: 
  Country: None (occurrence: None)
  Receive Date: 20120816
  Receipt Date: 20120813
  Transmission Date: 20120928
  Serious: Yes (Other)
  Sender: FDA-Public Use
  Company Number: PHHY2012CA070224

PATIENT
  Sex: Male

DRUGS (2)
  1. ZOLEDRONOC ACID [Suspect]
     Indication: OSTEOPOROSIS
     Route: 042
     Dates: start: 20100616
  2. ZOLEDRONOC ACID [Suspect]
     Route: 042
     Dates: start: 20110606

REACTIONS (1)
  - SYSTEMIC LUPUS ERYTHEMATOSUS [None]
